FAERS Safety Report 15087714 (Version 6)
Quarter: 2018Q4

REPORT INFORMATION
  Report Type: Spontaneous
  Country: AT (occurrence: AT)
  Receive Date: 20180629
  Receipt Date: 20181015
  Transmission Date: 20190204
  Serious: Yes (Other)
  Sender: FDA-Public Use
  Company Number: AT-BRISTOL-MYERS SQUIBB COMPANY-BMS-2018-055189

PATIENT
  Age: 50 Year
  Sex: Male
  Weight: 67 kg

DRUGS (25)
  1. IRBEPRESS HCT [Interacting]
     Active Substance: HYDROCHLOROTHIAZIDE\IRBESARTAN
     Indication: HYPERTENSION
     Dosage: 150 MG, QD
     Route: 065
     Dates: start: 20180516, end: 20180704
  2. CARVEDILOL. [Concomitant]
     Active Substance: CARVEDILOL
     Indication: PRODUCT USED FOR UNKNOWN INDICATION
     Dosage: 25 MG (1/2-0-1/2)
     Route: 065
  3. CARVEDILOL. [Concomitant]
     Active Substance: CARVEDILOL
     Indication: PRODUCT USED FOR UNKNOWN INDICATION
     Dosage: 12.5 MG (1/2)
     Route: 065
  4. ASCALAN [Concomitant]
     Active Substance: DOXAZOSIN MESYLATE
     Indication: HYPERTENSION
     Dosage: 6 G, UNK
     Route: 065
  5. IRBEPRESS [Concomitant]
     Indication: HYPERTENSION
     Dosage: 150 MG, UNK
     Route: 065
     Dates: end: 20180707
  6. IRBEPRESS [Concomitant]
     Indication: PRODUCT USED FOR UNKNOWN INDICATION
     Dosage: 150 MG, EVERY 1 DAY
     Route: 065
     Dates: start: 20180516, end: 20180704
  7. PANTOPRAZOLE [Concomitant]
     Active Substance: PANTOPRAZOLE
     Indication: GASTRIC DISORDER
     Dosage: 20 MG, QD
     Route: 065
     Dates: start: 20180404
  8. LYSODREN [Interacting]
     Active Substance: MITOTANE
     Indication: PRODUCT USED FOR UNKNOWN INDICATION
     Dosage: 5 TAB, QD
     Route: 065
     Dates: start: 20180401, end: 20180403
  9. IRBEPRESS HCT [Interacting]
     Active Substance: HYDROCHLOROTHIAZIDE\IRBESARTAN
     Indication: PRODUCT USED FOR UNKNOWN INDICATION
     Dosage: 150 MG, QD
     Route: 065
     Dates: start: 20180809, end: 20180911
  10. ASCALAN [Concomitant]
     Active Substance: DOXAZOSIN MESYLATE
     Indication: PRODUCT USED FOR UNKNOWN INDICATION
     Dosage: 6 MG, 1-1-0
     Route: 065
     Dates: start: 20180516, end: 20180704
  11. HYDROCORTONE                       /00028601/ [Concomitant]
     Active Substance: HYDROCORTISONE
     Indication: PRODUCT USED FOR UNKNOWN INDICATION
     Dosage: 30 UNK, UNK
     Route: 065
     Dates: start: 20180324, end: 20180611
  12. CARVEDILOL. [Concomitant]
     Active Substance: CARVEDILOL
     Indication: HYPERTENSION
     Dosage: 50 MG, 1-0-1
     Route: 065
  13. LYSODREN [Interacting]
     Active Substance: MITOTANE
     Indication: PRODUCT USED FOR UNKNOWN INDICATION
     Dosage: 6 TAB, QD
     Route: 065
     Dates: start: 20180404, end: 20180808
  14. ASCALAN [Concomitant]
     Active Substance: DOXAZOSIN MESYLATE
     Indication: PRODUCT USED FOR UNKNOWN INDICATION
     Dosage: 1/2-1/2-1/2
     Route: 065
     Dates: end: 20180707
  15. ASCALAN [Concomitant]
     Active Substance: DOXAZOSIN MESYLATE
     Indication: PRODUCT USED FOR UNKNOWN INDICATION
     Dosage: 1-1/2-1/2
     Route: 065
     Dates: end: 20180730
  16. HYDROCORTONE                       /00028601/ [Concomitant]
     Active Substance: HYDROCORTISONE
     Indication: PRODUCT USED FOR UNKNOWN INDICATION
     Dosage: 40 TO 50 MG, DAILY STOPPED IN 2018
     Route: 065
     Dates: start: 20180612, end: 20180816
  17. LYSODREN [Interacting]
     Active Substance: MITOTANE
     Indication: PRODUCT USED FOR UNKNOWN INDICATION
     Dosage: 3.5 MG, QD
     Route: 065
     Dates: start: 20180809, end: 20180911
  18. LYSODREN [Suspect]
     Active Substance: MITOTANE
     Indication: ADJUVANT THERAPY
     Dosage: UNK TAB,
     Route: 065
     Dates: start: 20180316, end: 20180327
  19. IRBEPRESS HCT [Interacting]
     Active Substance: HYDROCHLOROTHIAZIDE\IRBESARTAN
     Indication: PRODUCT USED FOR UNKNOWN INDICATION
     Dosage: UNK
     Route: 065
     Dates: start: 20180707, end: 20180809
  20. ASCALAN [Concomitant]
     Active Substance: DOXAZOSIN MESYLATE
     Indication: PRODUCT USED FOR UNKNOWN INDICATION
     Dosage: UNK
     Route: 065
     Dates: start: 20180809
  21. IRBEPRESS [Concomitant]
     Indication: PRODUCT USED FOR UNKNOWN INDICATION
     Dosage: 150 MG, EVERY DAY
     Route: 065
     Dates: start: 20180809, end: 20180911
  22. HYDROCORTONE                       /00028601/ [Concomitant]
     Active Substance: HYDROCORTISONE
     Indication: PRODUCT USED FOR UNKNOWN INDICATION
     Dosage: 60 UNK, UNK
     Route: 065
     Dates: start: 20180817
  23. LYSODREN [Interacting]
     Active Substance: MITOTANE
     Indication: PRODUCT USED FOR UNKNOWN INDICATION
     Dosage: 4 TAB, QD
     Route: 065
     Dates: start: 20180328, end: 20180331
  24. CARVEDILOL. [Concomitant]
     Active Substance: CARVEDILOL
     Indication: PRODUCT USED FOR UNKNOWN INDICATION
     Dosage: 25 MG, QD
     Route: 065
     Dates: start: 20180516, end: 20180911
  25. PANTOLOC                           /01263201/ [Concomitant]
     Active Substance: PANTOPRAZOLE SODIUM
     Indication: GASTRIC DISORDER
     Dosage: 40 MG, QD
     Route: 065
     Dates: end: 20180403

REACTIONS (13)
  - Blood test abnormal [Unknown]
  - Muscular weakness [Recovering/Resolving]
  - Blood pressure inadequately controlled [Recovering/Resolving]
  - Fatigue [Recovering/Resolving]
  - Gastric disorder [Recovering/Resolving]
  - Feeling hot [Recovering/Resolving]
  - Weight decreased [Not Recovered/Not Resolved]
  - Chills [Recovering/Resolving]
  - Drug interaction [Unknown]
  - Adrenal insufficiency [Recovering/Resolving]
  - Dysgeusia [Recovering/Resolving]
  - Product use in unapproved indication [Recovering/Resolving]
  - Peripheral coldness [Recovering/Resolving]
